FAERS Safety Report 6355814-8 (Version None)
Quarter: 2009Q3

REPORT INFORMATION
  Report Type: 
  Country: None (occurrence: None)
  Receive Date: 20090915
  Receipt Date: 20090901
  Transmission Date: 20100115
  Serious: Yes (Hospitalization)
  Sender: FDA-Public Use
  Company Number: US-RANBAXY-2009RR-26565

PATIENT
  Age: 50 Year
  Sex: Female

DRUGS (6)
  1. AMOXICILLIN [Suspect]
  2. AMOXICILLIN [Suspect]
  3. AZITHROMYCIN [Concomitant]
     Indication: LYMPHADENITIS
     Route: 042
  4. FELODIPINE [Concomitant]
  5. LEVOTHYROXINE SODIUM [Concomitant]
  6. GLYBURIDE AND METFORMIN HCL [Concomitant]

REACTIONS (2)
  - NECROTISING GRANULOMATOUS LYMPHADENITIS [None]
  - STEVENS-JOHNSON SYNDROME [None]
